FAERS Safety Report 10220539 (Version 2)
Quarter: 2014Q2

REPORT INFORMATION
  Report Type: Other
  Country: US (occurrence: US)
  Receive Date: 20140606
  Receipt Date: 20140606
  Transmission Date: 20141212
  Serious: Yes (Hospitalization, Other)
  Sender: FDA-Public Use
  Company Number: US-SHIRE-US201401662

PATIENT
  Age: 33 Year
  Sex: Female

DRUGS (1)
  1. FIRAZYR [Suspect]
     Indication: HEREDITARY ANGIOEDEMA
     Dosage: 30 MG, UNKNOWN
     Route: 058

REACTIONS (3)
  - Appendicitis perforated [Unknown]
  - Volvulus of small bowel [Unknown]
  - Weight decreased [Unknown]
